FAERS Safety Report 6641105-4 (Version None)
Quarter: 2010Q1

REPORT INFORMATION
  Report Type: 
  Country: None (occurrence: None)
  Receive Date: 20100318
  Receipt Date: 20091210
  Transmission Date: 20100710
  Serious: Yes (Other)
  Sender: FDA-Public Use
  Company Number: US-ASTRAZENECA-2009SE31119

PATIENT
  Sex: Female

DRUGS (3)
  1. ZESTRIL [Suspect]
     Route: 048
  2. METOPROLOL SUCCINATE [Suspect]
     Route: 048
  3. UNKNOWN DIURETIC [Concomitant]

REACTIONS (1)
  - HYPOTENSION [None]
